FAERS Safety Report 10333601 (Version 4)
Quarter: 2015Q1

REPORT INFORMATION
  Report Type: Spontaneous
  Country: US (occurrence: US)
  Receive Date: 20140723
  Receipt Date: 20150211
  Transmission Date: 20150720
  Serious: Yes (Other)
  Sender: FDA-Public Use
  Company Number: US-ROCHE-1436270

PATIENT
  Age: 62 Year
  Sex: Male

DRUGS (7)
  1. ZELBORAF [Suspect]
     Active Substance: VEMURAFENIB
     Indication: MALIGNANT MELANOMA
     Dosage: 4 TABS
     Route: 048
     Dates: start: 20130603, end: 20150204
  2. LORATADINE. [Concomitant]
     Active Substance: LORATADINE
     Route: 065
  3. ESCITALOPRAM [Concomitant]
     Active Substance: ESCITALOPRAM OXALATE
     Route: 065
  4. AMLODIPINE [Concomitant]
     Active Substance: AMLODIPINE BESYLATE
     Route: 065
  5. ACIDOPHILUS [Concomitant]
     Active Substance: LACTOBACILLUS ACIDOPHILUS
  6. ZELBORAF [Suspect]
     Active Substance: VEMURAFENIB
     Indication: SKIN CANCER
     Route: 048
     Dates: start: 20130603
  7. IBUPROFEN. [Concomitant]
     Active Substance: IBUPROFEN
     Indication: PAIN
     Dosage: 400 MG-600 MG
     Route: 048
     Dates: end: 20141202

REACTIONS (9)
  - Muscle spasms [Unknown]
  - Dizziness [Unknown]
  - Abdominal pain upper [Recovered/Resolved]
  - Brain neoplasm [Unknown]
  - Balance disorder [Unknown]
  - Arthralgia [Unknown]
  - Dyskinesia [Unknown]
  - Haematochezia [Recovered/Resolved]
  - Drug effect decreased [Unknown]

NARRATIVE: CASE EVENT DATE: 20141013
